FAERS Safety Report 7041507-0 (Version None)
Quarter: 2010Q4

REPORT INFORMATION
  Report Type: 
  Country: None (occurrence: None)
  Receive Date: 20101013
  Receipt Date: 20100302
  Transmission Date: 20110411
  Serious: No
  Sender: FDA-Public Use
  Company Number: US-ASTRAZENECA-2010SE09063

PATIENT
  Age: 72 Year
  Sex: Female

DRUGS (5)
  1. SYMBICORT [Suspect]
     Indication: EMPHYSEMA
     Dosage: 80/4.5 MG TOTAL 320 MCG
     Route: 055
     Dates: start: 20100101
  2. SYMBICORT [Suspect]
     Dosage: 160/4.5 MG TWO PUFFS TWICE A DAY
     Route: 055
     Dates: start: 20100201
  3. SULAR [Concomitant]
  4. METOPROLOL [Concomitant]
  5. PROAIR HFA [Concomitant]
     Dosage: AS REQUIRED

REACTIONS (1)
  - DYSPNOEA [None]
